FAERS Safety Report 24902084 (Version 1)
Quarter: 2025Q1

REPORT INFORMATION
  Report Type: Report from Study
  Country: EG (occurrence: EG)
  Receive Date: 20250129
  Receipt Date: 20250129
  Transmission Date: 20250408
  Serious: Yes (Death, Other)
  Sender: TAKEDA
  Company Number: EG-TAKEDA-2025TUS009677

PATIENT
  Age: 90 Year
  Sex: Male

DRUGS (1)
  1. IXAZOMIB [Suspect]
     Active Substance: IXAZOMIB
     Indication: Plasma cell myeloma refractory

REACTIONS (1)
  - Death [Fatal]

NARRATIVE: CASE EVENT DATE: 20250125
